FAERS Safety Report 4391581-5 (Version None)
Quarter: 2004Q3

REPORT INFORMATION
  Report Type: 
  Country: None (occurrence: None)
  Receive Date: 20040701
  Receipt Date: 20040614
  Transmission Date: 20050211
  Serious: Yes (Hospitalization, Other)
  Sender: FDA-Public Use
  Company Number: USA040670132

PATIENT
  Age: 84 Year
  Sex: Female

DRUGS (11)
  1. EVISTA [Suspect]
     Indication: OSTEOPOROSIS
  2. CALCIUM [Concomitant]
  3. BENICAR [Concomitant]
  4. NORVASC [Concomitant]
  5. LOPRESSOR [Concomitant]
  6. MECLIZINE [Concomitant]
  7. MULTIVITAMIN [Concomitant]
  8. RED YEAST RICE (RED YEAST RICE) [Concomitant]
  9. OMEGA 3 (FISH OIL) [Concomitant]
  10. FLAXSEED [Concomitant]
  11. PLAVIX [Concomitant]

REACTIONS (11)
  - ARTHRALGIA [None]
  - BACK PAIN [None]
  - CONTUSION [None]
  - DIZZINESS [None]
  - FALL [None]
  - HEAD INJURY [None]
  - JOINT INJURY [None]
  - JOINT SPRAIN [None]
  - PAIN [None]
  - SWELLING [None]
  - TRANSIENT ISCHAEMIC ATTACK [None]
